FAERS Safety Report 4309825-4 (Version None)
Quarter: 2004Q1

REPORT INFORMATION
  Report Type: 
  Country: None (occurrence: None)
  Receive Date: 20040301
  Receipt Date: 20031118
  Transmission Date: 20041129
  Serious: Yes (Death)
  Sender: FDA-Public Use
  Company Number: 1485

PATIENT
  Sex: Female

DRUGS (1)
  1. AVINZA [Suspect]

REACTIONS (1)
  - OVERDOSE [None]
